FAERS Safety Report 7767128-X (Version None)
Quarter: 2011Q3

REPORT INFORMATION
  Report Type: 
  Country: None (occurrence: None)
  Receive Date: 20110922
  Receipt Date: 20100810
  Transmission Date: 20111222
  Serious: No
  Sender: FDA-Public Use
  Company Number: US-ASTRAZENECA-2010SE37355

PATIENT
  Age: 717 Month
  Sex: Female
  Weight: 108.4 kg

DRUGS (4)
  1. SEROQUEL [Suspect]
     Route: 048
     Dates: start: 20060117, end: 20071112
  2. SEROQUEL [Suspect]
     Indication: SCHIZOPHRENIA
     Route: 048
     Dates: start: 20040101, end: 20070101
  3. ZYPREXA [Concomitant]
     Indication: SCHIZOPHRENIA
     Dates: start: 19970612, end: 19980605
  4. ABILIFY [Concomitant]
     Dates: start: 20060905, end: 20071112

REACTIONS (6)
  - GESTATIONAL DIABETES [None]
  - DIABETIC COMPLICATION [None]
  - WEIGHT INCREASED [None]
  - TYPE 2 DIABETES MELLITUS [None]
  - BLOOD TRIGLYCERIDES INCREASED [None]
  - OBESITY [None]
